FAERS Safety Report 6193191-6 (Version None)
Quarter: 2009Q2

REPORT INFORMATION
  Report Type: 
  Country: None (occurrence: None)
  Receive Date: 20090518
  Receipt Date: 20090508
  Transmission Date: 20091009
  Serious: Yes (Hospitalization)
  Sender: FDA-Public Use
  Company Number: A0760223A

PATIENT
  Age: 49 Year
  Sex: Male
  Weight: 113.6 kg

DRUGS (9)
  1. AVANDIA [Suspect]
     Indication: TYPE 2 DIABETES MELLITUS
     Route: 048
     Dates: start: 20050207, end: 20061201
  2. AVANDAMET [Suspect]
     Indication: TYPE 2 DIABETES MELLITUS
     Dosage: 1000MG TWICE PER DAY
     Route: 048
     Dates: start: 20040220, end: 20050201
  3. METFORMIN HCL [Concomitant]
     Dosage: 1000MG UNKNOWN
     Dates: start: 20050207, end: 20070119
  4. AMARYL [Concomitant]
     Dates: start: 20060907, end: 20061001
  5. NITROGLYCERIN [Concomitant]
  6. PLAVIX [Concomitant]
  7. CRESTOR [Concomitant]
  8. LOTREL [Concomitant]
  9. AMARYL [Concomitant]

REACTIONS (4)
  - CARDIAC DISORDER [None]
  - CORONARY ARTERY DISEASE [None]
  - HEART INJURY [None]
  - MYOCARDIAL INFARCTION [None]
